FAERS Safety Report 7557180-9 (Version None)
Quarter: 2011Q2

REPORT INFORMATION
  Report Type: 
  Country: None (occurrence: None)
  Receive Date: 20110620
  Receipt Date: 20110607
  Transmission Date: 20111010
  Serious: Yes (Death, Life-Threatening, Hospitalization)
  Sender: FDA-Public Use
  Company Number: US-ROCHE-756611

PATIENT

DRUGS (1)
  1. BLINDED BEVACIZUMAB [Suspect]
     Route: 065

REACTIONS (7)
  - BACK PAIN [None]
  - MENTAL STATUS CHANGES [None]
  - MYOCARDIAL INFARCTION [None]
  - OEDEMA PERIPHERAL [None]
  - SPINAL FRACTURE [None]
  - DEATH [None]
  - PNEUMONITIS [None]
